FAERS Safety Report 8936319 (Version 2)
Quarter: 2013Q4

REPORT INFORMATION
  Report Type: Other
  Country: FR (occurrence: FR)
  Receive Date: 20121130
  Receipt Date: 20131122
  Transmission Date: 20140711
  Serious: Yes (Hospitalization)
  Sender: FDA-Public Use
  Company Number: FR-NAPPMUNDI-GBR-2012-0012169

PATIENT
  Age: 24 Year
  Sex: Female

DRUGS (7)
  1. OXYNORM [Suspect]
     Indication: BACK PAIN
     Dosage: UNK
     Route: 065
     Dates: end: 20110228
  2. VALIUM                             /00017001/ [Concomitant]
  3. KEPPRA [Concomitant]
  4. SPASFON /00765801/ [Concomitant]
  5. PERFALGAN [Concomitant]
  6. PRIMPERAN [Concomitant]
  7. ACUPAN [Concomitant]

REACTIONS (10)
  - Drug withdrawal syndrome [Unknown]
  - Drug dependence [Unknown]
  - Vomiting [Unknown]
  - Hyperhidrosis [Unknown]
  - Chills [Unknown]
  - Pallor [Unknown]
  - Anxiety [Unknown]
  - Sleep disorder [Unknown]
  - Pain [Unknown]
  - Dehydration [Unknown]
